FAERS Safety Report 21440131 (Version 2)
Quarter: 2022Q4

REPORT INFORMATION
  Report Type: Spontaneous
  Country: US (occurrence: US)
  Receive Date: 20221011
  Receipt Date: 20221012
  Transmission Date: 20230113
  Serious: No
  Sender: FDA-Public Use
  Company Number: US-PFIZER INC-PV202200079321

PATIENT

DRUGS (1)
  1. LORLATINIB [Interacting]
     Active Substance: LORLATINIB
     Indication: Non-small cell lung cancer
     Dosage: UNK

REACTIONS (3)
  - Drug interaction [Unknown]
  - Mental disorder [Unknown]
  - Nervous system disorder [Unknown]
